FAERS Safety Report 4654698-3 (Version None)
Quarter: 2005Q2

REPORT INFORMATION
  Report Type: 
  Country: None (occurrence: None)
  Receive Date: 20050505
  Receipt Date: 20050505
  Transmission Date: 20051028
  Serious: Yes (Other)
  Sender: FDA-Public Use
  Company Number: None

PATIENT
  Age: 50 Year
  Sex: Female
  Weight: 81.6475 kg

DRUGS (1)
  1. LEVOTHYROXINE 100 MCG LANNE [Suspect]
     Indication: HYPOTHYROIDISM
     Dosage: 100 MCG DAILY ORAL
     Route: 048
     Dates: start: 20041101, end: 20050501

REACTIONS (2)
  - BLOOD THYROID STIMULATING HORMONE INCREASED [None]
  - PHARMACEUTICAL PRODUCT COMPLAINT [None]
